FAERS Safety Report 11105819 (Version 1)
Quarter: 2015Q2

REPORT INFORMATION
  Report Type: Spontaneous
  Country: FR (occurrence: FR)
  Receive Date: 20150512
  Receipt Date: 20150512
  Transmission Date: 20150821
  Serious: Yes (Life-Threatening)
  Sender: FDA-Public Use
  Company Number: FR-ELI_LILLY_AND_COMPANY-FR201505000698

PATIENT
  Age: 44 Year
  Sex: Male

DRUGS (4)
  1. BACLOFEN. [Interacting]
     Active Substance: BACLOFEN
     Indication: ALCOHOL WITHDRAWAL SYNDROME
     Dosage: 25MG, TID
     Route: 065
  2. CYMBALTA [Interacting]
     Active Substance: DULOXETINE HYDROCHLORIDE
     Dosage: 60MG, DAILY
     Route: 048
     Dates: start: 201402
  3. ALCOHOL. [Interacting]
     Active Substance: ALCOHOL
     Indication: PRODUCT USED FOR UNKNOWN INDICATION
     Dosage: UNK UNK, UNKNOWN
     Route: 065
  4. CYMBALTA [Suspect]
     Active Substance: DULOXETINE HYDROCHLORIDE
     Indication: DEPRESSION
     Dosage: 30MG, DAILY
     Route: 048
     Dates: end: 201402

REACTIONS (8)
  - Suicide attempt [Unknown]
  - Drug interaction [Unknown]
  - Alcohol poisoning [Unknown]
  - Withdrawal syndrome [Recovered/Resolved]
  - Coma [Recovered/Resolved]
  - Agitation [Unknown]
  - Aggression [Unknown]
  - Intentional overdose [Unknown]

NARRATIVE: CASE EVENT DATE: 20140914
